FAERS Safety Report 24428551 (Version 1)
Quarter: 2024Q4

REPORT INFORMATION
  Report Type: Spontaneous
  Country: CZ (occurrence: CZ)
  Receive Date: 20241011
  Receipt Date: 20241011
  Transmission Date: 20250115
  Serious: Yes (Hospitalization, Other)
  Sender: MERCK
  Company Number: CZ-009507513-2410CZE002843

PATIENT
  Age: 78 Year
  Sex: Male

DRUGS (9)
  1. PEMBROLIZUMAB [Suspect]
     Active Substance: PEMBROLIZUMAB
     Indication: Adenocarcinoma
     Dosage: 400 MILLIGRAM, EVERY 6 WEEKS
     Dates: end: 202307
  2. PEMBROLIZUMAB [Suspect]
     Active Substance: PEMBROLIZUMAB
     Dosage: 400 MILLIGRAM, EVERY 6 WEEKS
     Dates: start: 202404, end: 202404
  3. DIGOXIN [Concomitant]
     Active Substance: DIGOXIN
  4. ELIQUIS [Concomitant]
     Active Substance: APIXABAN
  5. DIOSMIN\HESPERIDIN [Concomitant]
     Active Substance: DIOSMIN\HESPERIDIN
  6. METOPROLOL SUCCINATE [Concomitant]
     Active Substance: METOPROLOL SUCCINATE
  7. ATORVASTATIN [Concomitant]
     Active Substance: ATORVASTATIN
  8. NICOFURANOSE [Concomitant]
     Active Substance: NICOFURANOSE
  9. BEVESPI AEROSPHERE [Concomitant]
     Active Substance: FORMOTEROL FUMARATE\GLYCOPYRROLATE

REACTIONS (30)
  - Atrial fibrillation [Unknown]
  - Colitis [Recovering/Resolving]
  - Renal failure [Unknown]
  - Colitis ulcerative [Unknown]
  - Weight decreased [Recovered/Resolved]
  - Parkinson^s disease [Unknown]
  - Ileal ulcer [Unknown]
  - Inflammatory bowel disease [Unknown]
  - Diarrhoea [Recovered/Resolved]
  - Colitis ulcerative [Unknown]
  - Dystonia [Recovering/Resolving]
  - Pneumonia [Unknown]
  - Colitis [Unknown]
  - Tinea capitis [Recovering/Resolving]
  - Onychomycosis [Recovering/Resolving]
  - Chronic obstructive pulmonary disease [Recovered/Resolved]
  - Chronic obstructive pulmonary disease [Unknown]
  - Dysphonia [Recovering/Resolving]
  - Diplopia [Unknown]
  - Skin ulcer [Unknown]
  - Hypotension [Unknown]
  - Respiratory tract infection [Recovering/Resolving]
  - Anal inflammation [Unknown]
  - Gastrointestinal mucosa hyperaemia [Unknown]
  - Limb traumatic amputation [Unknown]
  - Bronchoscopy [Unknown]
  - Therapy partial responder [Unknown]
  - Atrial flutter [Unknown]
  - Reflux laryngitis [Recovering/Resolving]
  - Colonoscopy abnormal [Unknown]

NARRATIVE: CASE EVENT DATE: 20221101
